FAERS Safety Report 17313766 (Version 3)
Quarter: 2020Q2

REPORT INFORMATION
  Report Type: Spontaneous
  Country: US (occurrence: US)
  Receive Date: 20200124
  Receipt Date: 20200410
  Transmission Date: 20200713
  Serious: Yes (Other)
  Sender: FDA-Public Use
  Company Number: US-GILEAD-2020-0448029

PATIENT
  Age: 44 Year
  Sex: Male

DRUGS (45)
  1. DESCOVY [Concomitant]
     Active Substance: EMTRICITABINE\TENOFOVIR ALAFENAMIDE FUMARATE
  2. AZITHROMYCIN ANHYDROUS. [Concomitant]
     Active Substance: AZITHROMYCIN ANHYDROUS
  3. SPIRIVA [Concomitant]
     Active Substance: TIOTROPIUM BROMIDE MONOHYDRATE
  4. MORPHINE SULFATE. [Concomitant]
     Active Substance: MORPHINE SULFATE
  5. PREZISTA [Concomitant]
     Active Substance: DARUNAVIR ETHANOLATE
  6. TRUVADA [Suspect]
     Active Substance: EMTRICITABINE\TENOFOVIR DISOPROXIL FUMARATE
     Indication: HIV INFECTION
     Dosage: 1 DOSAGE FORM, QD
     Route: 048
     Dates: start: 201110, end: 201310
  7. OXYCODONE [Concomitant]
     Active Substance: OXYCODONE
  8. POLYETHYLENE GLYCOL [Concomitant]
     Active Substance: POLYETHYLENE GLYCOLS
  9. PROPRANOLOL [Concomitant]
     Active Substance: PROPRANOLOL HYDROCHLORIDE
  10. MORPHINE SULPHATE [Concomitant]
     Active Substance: MORPHINE SULFATE
  11. LAMOTRIGINE. [Concomitant]
     Active Substance: LAMOTRIGINE
  12. CYMBALTA [Concomitant]
     Active Substance: DULOXETINE HYDROCHLORIDE
  13. TEMAZEPAM. [Concomitant]
     Active Substance: TEMAZEPAM
  14. GENVOYA [Concomitant]
     Active Substance: COBICISTAT\ELVITEGRAVIR\EMTRICITABINE\TENOFOVIR ALAFENAMIDE FUMARATE
  15. NICODERM CQ [Concomitant]
     Active Substance: NICOTINE
  16. FERROUS SULFATE. [Concomitant]
     Active Substance: FERROUS SULFATE
  17. DULOXETINE. [Concomitant]
     Active Substance: DULOXETINE
  18. SPIRONOLACTONE. [Concomitant]
     Active Substance: SPIRONOLACTONE
  19. STRIBILD [Suspect]
     Active Substance: COBICISTAT\ELVITEGRAVIR\EMTRICITABINE\TENOFOVIR DISOPROXIL FUMARATE
     Indication: HIV INFECTION
     Dosage: 1 DOSAGE FORM, QD
     Route: 048
     Dates: start: 201310, end: 2018
  20. CONTOUR [ESOMEPRAZOLE SODIUM] [Concomitant]
  21. MICROLET [ETHINYLESTRADIOL;GESTODENE] [Concomitant]
  22. NORTRIPTYLINE [Concomitant]
     Active Substance: NORTRIPTYLINE
  23. KADIAN [Concomitant]
     Active Substance: MORPHINE SULFATE
  24. DAPSONE. [Concomitant]
     Active Substance: DAPSONE
  25. ATRIPLA [Suspect]
     Active Substance: EFAVIRENZ\EMTRICITABINE\TENOFOVIR DISOPROXIL FUMARATE
     Indication: HIV INFECTION
     Dosage: UNK
     Route: 065
     Dates: start: 2006, end: 2011
  26. ANDROGEL [Concomitant]
     Active Substance: TESTOSTERONE
  27. OMEPRAZOLE. [Concomitant]
     Active Substance: OMEPRAZOLE
  28. VENTOLIN HFA [Concomitant]
     Active Substance: ALBUTEROL SULFATE
  29. GLIPIZIDE. [Concomitant]
     Active Substance: GLIPIZIDE
  30. CLINDAMYCIN. [Concomitant]
     Active Substance: CLINDAMYCIN
  31. MIRTAZAPINE. [Concomitant]
     Active Substance: MIRTAZAPINE
  32. IMIQUIMOD. [Concomitant]
     Active Substance: IMIQUIMOD
  33. RISPERIDONE. [Concomitant]
     Active Substance: RISPERIDONE
  34. HYDROXYZINE HCL [Concomitant]
     Active Substance: HYDROXYZINE HYDROCHLORIDE
  35. TRETINOIN. [Concomitant]
     Active Substance: TRETINOIN
  36. VITAMIN D3 [Concomitant]
     Active Substance: CHOLECALCIFEROL
  37. FAMOTIDINE. [Concomitant]
     Active Substance: FAMOTIDINE
  38. METFORMIN [Concomitant]
     Active Substance: METFORMIN HYDROCHLORIDE
  39. NOVIR [RITONAVIR] [Concomitant]
  40. SUMATRIPTAN. [Concomitant]
     Active Substance: SUMATRIPTAN
  41. MICROLET [ETHINYLESTRADIOL;GESTODENE] [Concomitant]
  42. GENERLAC [Concomitant]
     Active Substance: LACTULOSE
  43. FUROSEMIDE. [Concomitant]
     Active Substance: FUROSEMIDE
  44. LORAZEPAM. [Concomitant]
     Active Substance: LORAZEPAM
  45. FENTANYL. [Concomitant]
     Active Substance: FENTANYL

REACTIONS (11)
  - Renal disorder [Unknown]
  - Economic problem [Unknown]
  - Anxiety [Unknown]
  - Osteopenia [Not Recovered/Not Resolved]
  - Pain [Unknown]
  - Multiple fractures [Not Recovered/Not Resolved]
  - Emotional distress [Unknown]
  - Osteoporosis [Not Recovered/Not Resolved]
  - Renal impairment [Not Recovered/Not Resolved]
  - Bone density decreased [Unknown]
  - Anhedonia [Unknown]

NARRATIVE: CASE EVENT DATE: 201811
